FAERS Safety Report 8489618-7 (Version None)
Quarter: 2012Q3

REPORT INFORMATION
  Report Type: 
  Country: None (occurrence: None)
  Receive Date: 20120705
  Receipt Date: 20120704
  Transmission Date: 20120928
  Serious: No
  Sender: FDA-Public Use
  Company Number: US-BAYER-2012-056828

PATIENT
  Age: 47 Year
  Sex: Male
  Weight: 109 kg

DRUGS (1)
  1. NAPROXEN (ALEVE) [Suspect]
     Indication: HEADACHE
     Dosage: UNK
     Route: 048

REACTIONS (2)
  - THERAPEUTIC RESPONSE UNEXPECTED [None]
  - NO ADVERSE EVENT [None]
